FAERS Safety Report 9703344 (Version 1)
Quarter: 2013Q4

REPORT INFORMATION
  Report Type: Spontaneous
  Country: US (occurrence: None)
  Receive Date: 20131121
  Receipt Date: 20131121
  Transmission Date: 20140711
  Serious: No
  Sender: FDA-Public Use
  Company Number: None

PATIENT
  Age: 51 Year
  Sex: Female

DRUGS (2)
  1. GABAPENTIN [Suspect]
  2. GABAPENTIN [Suspect]

REACTIONS (5)
  - Drug dispensing error [None]
  - Intercepted drug dispensing error [None]
  - Product barcode issue [None]
  - No adverse event [None]
  - Medication error [None]
